FAERS Safety Report 23087690 (Version 3)
Quarter: 2025Q2

REPORT INFORMATION
  Report Type: Spontaneous
  Country: US (occurrence: US)
  Receive Date: 20231020
  Receipt Date: 20250511
  Transmission Date: 20250716
  Serious: No
  Sender: NOVARTIS
  Company Number: US-002147023-NVSC2023US225479

PATIENT
  Sex: Male
  Weight: 81.179 kg

DRUGS (3)
  1. EVEROLIMUS [Suspect]
     Active Substance: EVEROLIMUS
     Indication: Product used for unknown indication
     Route: 065
  2. LENVIMA [Suspect]
     Active Substance: LENVATINIB
     Indication: Renal cancer
     Dosage: 18 MG, QD (1-10 MG/2-4MG) 5 DAYS
     Route: 048
     Dates: start: 20230929
  3. LENVIMA [Suspect]
     Active Substance: LENVATINIB
     Dosage: 18 MG, QD
     Route: 048
     Dates: start: 20230929, end: 20250429

REACTIONS (3)
  - Stomatitis [Unknown]
  - Hypertension [Unknown]
  - Drug ineffective [Unknown]
